FAERS Safety Report 8210659-9 (Version None)
Quarter: 2012Q1

REPORT INFORMATION
  Report Type: 
  Country: None (occurrence: None)
  Receive Date: 20120314
  Receipt Date: 20120306
  Transmission Date: 20120608
  Serious: Yes (Other)
  Sender: FDA-Public Use
  Company Number: JP-VERTEX PHARMACEUTICALS INC.-AE-2012-003441

PATIENT
  Age: 68 Year
  Sex: Male

DRUGS (11)
  1. RIBAVIRIN [Concomitant]
     Route: 048
     Dates: start: 20120201
  2. TELAVIC (TELAPREVIR) [Suspect]
     Indication: HEPATITIS C
     Route: 048
     Dates: start: 20120111, end: 20120131
  3. RIBAVIRIN [Concomitant]
     Indication: HEPATITIS C
     Route: 048
     Dates: start: 20120111, end: 20120124
  4. RIBAVIRIN [Concomitant]
     Route: 048
     Dates: start: 20120125, end: 20120131
  5. ISOSORBIDE MONONITRATE [Concomitant]
  6. DIOVAN [Concomitant]
  7. ADALAT CC [Concomitant]
  8. TELAVIC (TELAPREVIR) [Suspect]
     Route: 048
     Dates: start: 20120201
  9. PEGINTERFERON [Concomitant]
     Indication: HEPATITIS C
     Route: 058
  10. LAMISIL [Concomitant]
  11. DEPAS [Concomitant]

REACTIONS (1)
  - RETINOPATHY [None]
